FAERS Safety Report 5646453-2 (Version None)
Quarter: 2008Q1

REPORT INFORMATION
  Report Type: 
  Country: None (occurrence: None)
  Receive Date: 20080303
  Receipt Date: 20080220
  Transmission Date: 20080703
  Serious: Yes (Death, Hospitalization)
  Sender: FDA-Public Use
  Company Number: DE-BRISTOL-MYERS SQUIBB COMPANY-14093777

PATIENT
  Age: 34 Year
  Sex: Female

DRUGS (19)
  1. ENDOXAN [Suspect]
     Indication: SYSTEMIC LUPUS ERYTHEMATOSUS
     Route: 042
     Dates: start: 20050302, end: 20050303
  2. UROMITEXAN [Suspect]
     Indication: PROPHYLAXIS
     Dosage: 3 DOSAGE FORM = 3 AMPULES.
     Route: 042
     Dates: start: 20050302, end: 20050303
  3. FOLSAN [Suspect]
     Indication: FOLATE DEFICIENCY
     Route: 048
     Dates: start: 20050211, end: 20050228
  4. CLEXANE [Suspect]
     Indication: THROMBOSIS PROPHYLAXIS
     Route: 058
     Dates: start: 20050125
  5. RISPERDAL [Suspect]
     Indication: DEPRESSION
     Route: 048
     Dates: start: 20050203
  6. CIPRAMIL [Suspect]
     Indication: DEPRESSION
     Route: 048
     Dates: start: 20050128
  7. PREDNISOLONE [Suspect]
     Indication: SYSTEMIC LUPUS ERYTHEMATOSUS
     Dates: end: 20050309
  8. PANTOZOL [Suspect]
     Indication: PROPHYLAXIS
     Route: 065
     Dates: start: 20050115
  9. CALCIMAGON [Suspect]
     Indication: MINERAL SUPPLEMENTATION
     Route: 048
     Dates: start: 20050208
  10. DIPIPERON [Suspect]
     Indication: AGITATION
     Route: 048
     Dates: start: 20050209, end: 20050223
  11. FENISTIL [Suspect]
     Indication: PRURITUS
     Dosage: 1 DOSAGE FORM = 80 GTT
     Route: 048
     Dates: start: 20050214, end: 20050223
  12. KALINOR [Suspect]
     Indication: MINERAL SUPPLEMENTATION
     Route: 048
     Dates: start: 20050223, end: 20050302
  13. DIPIDOLOR [Suspect]
     Indication: PAIN
     Dosage: 1 DOSAGE FORM = 1 AMPULE.
     Route: 030
     Dates: start: 20050225, end: 20050225
  14. DECAPEPTYL [Suspect]
     Dosage: 1 DOSAGE FORM = 1 AMPULE.
     Route: 058
     Dates: start: 20050306, end: 20050306
  15. DECORTIN [Concomitant]
     Dosage: 70 MG, 60 MG, AND 50 MG
     Route: 048
     Dates: start: 20050208, end: 20050223
  16. ESPUMISAN [Concomitant]
     Dates: start: 20050208, end: 20050223
  17. FORTIMEL [Concomitant]
     Dates: start: 20050210, end: 20050223
  18. AMOXICILLIN + CLAVULANATE POTASSIUM [Concomitant]
     Dosage: 1 DOSAGE FORM = 875 MG
     Route: 048
     Dates: start: 20050125, end: 20050216
  19. CYANOCOBALAMIN [Concomitant]
     Dates: start: 20050210, end: 20050219

REACTIONS (2)
  - STEVENS-JOHNSON SYNDROME [None]
  - TOXIC EPIDERMAL NECROLYSIS [None]
